FAERS Safety Report 23296079 (Version 1)
Quarter: 2023Q4

REPORT INFORMATION
  Report Type: Spontaneous
  Country: US (occurrence: None)
  Receive Date: 20231213
  Receipt Date: 20231213
  Transmission Date: 20240109
  Serious: Yes (Hospitalization)
  Sender: FDA-Public Use
  Company Number: None

PATIENT
  Age: 47 Year
  Sex: Male

DRUGS (3)
  1. TESTOPEL [Suspect]
     Active Substance: TESTOSTERONE
     Indication: Testicular failure
     Dosage: OTHER FREQUENCY : EVERY 3 ONTHS;?
     Route: 058
     Dates: start: 20180321
  2. TESTOPEL [Suspect]
     Active Substance: TESTOSTERONE
     Dosage: OTHER QUANTITY : 8 PELLETS (60 MG);?OTHER FREQUENCY : EVERY 3 MONTHS;?
     Route: 058
  3. DEVICE\INSULIN NOS [Concomitant]
     Active Substance: DEVICE\INSULIN NOS

REACTIONS (1)
  - Atypical pneumonia [None]

NARRATIVE: CASE EVENT DATE: 20231012
